FAERS Safety Report 6843718-3 (Version None)
Quarter: 2010Q3

REPORT INFORMATION
  Report Type: 
  Country: None (occurrence: None)
  Receive Date: 20100715
  Receipt Date: 20100706
  Transmission Date: 20110219
  Serious: Yes (Hospitalization)
  Sender: FDA-Public Use
  Company Number: JP-BRISTOL-MYERS SQUIBB COMPANY-14318786

PATIENT
  Age: 85 Year
  Sex: Female
  Weight: 42 kg

DRUGS (3)
  1. MAXIPIME [Suspect]
     Indication: OSTEOMYELITIS
     Route: 041
     Dates: start: 20080816, end: 20080826
  2. VANCOMYCIN [Suspect]
     Indication: OSTEOMYELITIS
     Route: 042
  3. DALACIN [Suspect]
     Indication: OSTEOMYELITIS
     Route: 041
     Dates: end: 20080826

REACTIONS (3)
  - ALTERED STATE OF CONSCIOUSNESS [None]
  - MYOCLONUS [None]
  - RASH [None]
